FAERS Safety Report 23499948 (Version 1)
Quarter: 2024Q1

REPORT INFORMATION
  Report Type: Spontaneous
  Country: ES (occurrence: None)
  Receive Date: 20240208
  Receipt Date: 20240208
  Transmission Date: 20240409
  Serious: Yes (Other)
  Sender: FDA-Public Use
  Company Number: 2024A026711

PATIENT
  Sex: Male

DRUGS (1)
  1. KOSELUGO [Suspect]
     Active Substance: SELUMETINIB

REACTIONS (2)
  - Gastrointestinal haemorrhage [Unknown]
  - Abdominal pain [Unknown]
